FAERS Safety Report 16636005 (Version 3)
Quarter: 2019Q4

REPORT INFORMATION
  Report Type: Report from Study
  Country: KR (occurrence: KR)
  Receive Date: 20190726
  Receipt Date: 20191217
  Transmission Date: 20200122
  Serious: Yes (Hospitalization)
  Sender: FDA-Public Use
  Company Number: KR-NOVOPROD-673979

PATIENT
  Age: 67 Year
  Sex: Female
  Weight: 72.4 kg

DRUGS (11)
  1. NEUTILINE [Concomitant]
     Indication: CEREBRAL DISORDER
     Dosage: 2 DF (2CAP)
     Route: 048
     Dates: start: 20180326
  2. RYZODEG 70/30 [Suspect]
     Active Substance: INSULIN ASPART\INSULIN DEGLUDEC
     Indication: TYPE 2 DIABETES MELLITUS
     Dosage: 30 IU, TID (30IU-30IU-30IU)
     Route: 058
     Dates: start: 20181107
  3. RYZODEG 70/30 [Suspect]
     Active Substance: INSULIN ASPART\INSULIN DEGLUDEC
     Dosage: 30 IU, QD (ONLY IN THE MORNING)
     Route: 058
     Dates: start: 20190418
  4. EYEDEW [CARMELLOSE SODIUM;GLYCEROL] [Concomitant]
     Indication: DIABETIC RETINOPATHY
     Dosage: UNK
     Route: 047
     Dates: start: 20160317
  5. HERBEN [Concomitant]
     Active Substance: DILTIAZEM HYDROCHLORIDE
     Indication: HYPERTENSION
     Dosage: 1 DF (1TAB)
     Route: 048
     Dates: start: 20180326
  6. SEVIKAR HCT [Concomitant]
     Active Substance: AMLODIPINE BESYLATE\HYDROCHLOROTHIAZIDE\OLMESARTAN MEDOXOMIL
     Indication: HYPERTENSION
     Dosage: 1 DF (1TAB)
     Route: 048
     Dates: start: 20181107
  7. EVOPRIM [Concomitant]
     Indication: DIABETIC NEUROPATHY
     Dosage: 6 DF (6CAP)
     Route: 048
     Dates: start: 20180326
  8. ISOTRIL [Concomitant]
     Active Substance: ISOSORBIDE MONONITRATE
     Indication: CORONARY ARTERY DISEASE
     Dosage: 1 DF (1TAB)
     Route: 048
     Dates: start: 20180326
  9. LASIX [Concomitant]
     Active Substance: FUROSEMIDE
     Indication: HYPERTENSION
     Dosage: 1 DF (1TAB)
     Route: 048
     Dates: start: 20181107
  10. RYZODEG 70/30 [Suspect]
     Active Substance: INSULIN ASPART\INSULIN DEGLUDEC
     Dosage: 30 IU, BID (30IU-30IU)
     Route: 058
  11. VESSEL DUE F [Concomitant]
     Active Substance: SULODEXIDE
     Indication: DIABETIC RETINOPATHY
     Dosage: 2 DF (2CAP)
     Route: 048
     Dates: start: 20160725

REACTIONS (5)
  - Asthenia [Not Recovered/Not Resolved]
  - Hypoglycaemia [Recovered/Resolved]
  - Dyspnoea [Not Recovered/Not Resolved]
  - Generalised oedema [Not Recovered/Not Resolved]
  - Hypoglycaemic encephalopathy [Not Recovered/Not Resolved]

NARRATIVE: CASE EVENT DATE: 20190414
